FAERS Safety Report 6153595-4 (Version None)
Quarter: 2009Q2

REPORT INFORMATION
  Report Type: 
  Country: None (occurrence: None)
  Receive Date: 20090409
  Receipt Date: 20090330
  Transmission Date: 20091009
  Serious: Yes (Other)
  Sender: FDA-Public Use
  Company Number: FRP09000396

PATIENT
  Age: 58 Year
  Sex: Female

DRUGS (1)
  1. ACTONEL [Suspect]
     Indication: SPINAL FRACTURE
     Dosage: 75 MG, 1/MONTH, ORAL
     Route: 048
     Dates: start: 20090201, end: 20090301

REACTIONS (3)
  - CONJUNCTIVITIS ALLERGIC [None]
  - INCORRECT DOSE ADMINISTERED [None]
  - OCULAR DISCOMFORT [None]
